FAERS Safety Report 8328697-4 (Version None)
Quarter: 2012Q2

REPORT INFORMATION
  Report Type: 
  Country: None (occurrence: None)
  Receive Date: 20120502
  Receipt Date: 20120425
  Transmission Date: 20120825
  Serious: Yes (Hospitalization)
  Sender: FDA-Public Use
  Company Number: US-CELGENEUS-163-21880-12020586

PATIENT
  Sex: Female
  Weight: 60.382 kg

DRUGS (15)
  1. REVLIMID [Suspect]
     Indication: MULTIPLE MYELOMA
     Dosage: 10 MILLIGRAM
     Route: 048
     Dates: start: 20111202
  2. COUMADIN [Concomitant]
     Dosage: 2 MILLIGRAM
     Route: 065
  3. TYLENOL (CAPLET) [Concomitant]
     Indication: PAIN
     Route: 065
  4. VALIUM [Concomitant]
     Indication: PAIN
     Route: 065
  5. WARFARIN SODIUM [Concomitant]
     Indication: ANTICOAGULANT THERAPY
     Route: 065
  6. TRANSFUSION [Concomitant]
     Route: 041
  7. REVLIMID [Suspect]
     Dosage: 20 MILLIGRAM
     Route: 048
     Dates: start: 20120201
  8. IRON [Concomitant]
     Route: 065
  9. PAROXETINE [Concomitant]
     Dosage: 40 MILLIGRAM
     Route: 065
  10. PROCHLORPERAZINE [Concomitant]
     Dosage: 10 MILLIGRAM
     Route: 065
  11. PERCOCET [Concomitant]
     Indication: PAIN
     Route: 065
  12. POTASSIUM CHLORIDE [Concomitant]
     Route: 048
  13. POTASSIUM CL [Concomitant]
     Dosage: 20 MILLIEQUIVALENTS
     Route: 048
  14. ACYCLOVIR [Concomitant]
     Dosage: 800 MILLIGRAM
     Route: 065
  15. CHLORDIAZEPOXIDE HCL W/ CLIDINIUM BROMIDE [Concomitant]
     Route: 065

REACTIONS (4)
  - WHITE BLOOD CELL COUNT DECREASED [None]
  - PAIN [None]
  - BLOOD POTASSIUM DECREASED [None]
  - RED BLOOD CELL COUNT DECREASED [None]
